FAERS Safety Report 4620691-X (Version None)
Quarter: 2005Q1

REPORT INFORMATION
  Report Type: 
  Country: None (occurrence: None)
  Receive Date: 20050325
  Receipt Date: 20050314
  Transmission Date: 20050727
  Serious: Yes (Other)
  Sender: FDA-Public Use
  Company Number: 2005044584

PATIENT
  Sex: Female
  Weight: 54.4316 kg

DRUGS (1)
  1. BENADRYL [Suspect]
     Indication: HYPERSENSITIVITY
     Dosage: 2 GELCAPS AT NIGHT, ORAL
     Route: 048
     Dates: start: 20050201, end: 20050309

REACTIONS (1)
  - NOCTURNAL DYSPNOEA [None]
